FAERS Safety Report 19290320 (Version 5)
Quarter: 2022Q2

REPORT INFORMATION
  Report Type: Report from Study
  Country: US (occurrence: US)
  Receive Date: 20210521
  Receipt Date: 20220414
  Transmission Date: 20220721
  Serious: No
  Sender: FDA-Public Use
  Company Number: NVSC2021US114482

PATIENT
  Sex: Male

DRUGS (1)
  1. ENTRESTO [Suspect]
     Active Substance: SACUBITRIL\VALSARTAN
     Indication: Cardiac failure
     Dosage: 100 MG, BID
     Route: 048
     Dates: start: 202101

REACTIONS (5)
  - COVID-19 [Unknown]
  - Dyspnoea [Unknown]
  - Respiratory rate increased [Unknown]
  - Cough [Unknown]
  - Sinusitis [Unknown]
